FAERS Safety Report 5402983-X (Version None)
Quarter: 2007Q3

REPORT INFORMATION
  Report Type: 
  Country: None (occurrence: None)
  Receive Date: 20070718
  Receipt Date: 20070315
  Transmission Date: 20080115
  Serious: Yes (Other)
  Sender: FDA-Public Use
  Company Number: 2007022728

PATIENT
  Age: 74 Year
  Sex: Female
  Weight: 81.2 kg

DRUGS (14)
  1. METHYLPREDNISOLONE ACETATE [Suspect]
     Indication: DYSPNOEA
     Dates: start: 20060101
  2. METHYLPREDNISOLONE ACETATE [Suspect]
     Indication: LUNG INFECTION
     Dates: start: 20060101
  3. CHANTIX [Suspect]
     Indication: SMOKING CESSATION THERAPY
     Dosage: (0.5 MG)
     Dates: start: 20061207
  4. WARFARIN SODIUM [Concomitant]
  5. ALTACE [Concomitant]
  6. COREG [Concomitant]
  7. ALDACTONE [Concomitant]
  8. LASIX [Concomitant]
  9. LIPITOR [Concomitant]
  10. RESTORIL [Concomitant]
  11. ATIVAN [Concomitant]
  12. SPIRIVA [Concomitant]
  13. SALBUTAMOL (SALBUTAMOL) [Concomitant]
  14. ACTOS [Concomitant]

REACTIONS (3)
  - ABNORMAL DREAMS [None]
  - BLOOD GLUCOSE INCREASED [None]
  - DIARRHOEA [None]
